FAERS Safety Report 5683590-0 (Version None)
Quarter: 2008Q1

REPORT INFORMATION
  Report Type: 
  Country: None (occurrence: None)
  Receive Date: 20080326
  Receipt Date: 20070913
  Transmission Date: 20080703
  Serious: Yes (Hospitalization)
  Sender: FDA-Public Use
  Company Number: 6038039

PATIENT
  Sex: Male

DRUGS (1)
  1. DIABEX XR(500 MG, TABLET) (METFORMIN) [Suspect]
     Indication: DIABETES MELLITUS
     Dosage: (500 MG) ORAL
     Route: 048

REACTIONS (1)
  - GASTROINTESTINAL DISORDER [None]
